FAERS Safety Report 4936607-2 (Version None)
Quarter: 2006Q1

REPORT INFORMATION
  Report Type: 
  Country: None (occurrence: None)
  Receive Date: 20060307
  Receipt Date: 20051109
  Transmission Date: 20060701
  Serious: Yes (Death, Hospitalization, Disabling)
  Sender: FDA-Public Use
  Company Number: US-MERCK-0511USA01884

PATIENT
  Age: 65 Year
  Sex: Female
  Weight: 82 kg

DRUGS (4)
  1. VIOXX [Suspect]
     Indication: OSTEOARTHRITIS
     Route: 048
     Dates: start: 20010101, end: 20010818
  2. VIOXX [Suspect]
     Route: 048
     Dates: start: 20001001
  3. VIOXX [Suspect]
     Indication: ARTHRITIS
     Route: 048
     Dates: start: 20010101, end: 20010818
  4. VIOXX [Suspect]
     Route: 048
     Dates: start: 20001001

REACTIONS (7)
  - ADVERSE EVENT [None]
  - BRAIN STEM INFARCTION [None]
  - BRONCHITIS [None]
  - CEREBRAL INFARCTION [None]
  - CEREBROVASCULAR ACCIDENT [None]
  - PYREXIA [None]
  - URINARY TRACT INFECTION [None]
